FAERS Safety Report 6655941-1 (Version None)
Quarter: 2010Q1

REPORT INFORMATION
  Report Type: 
  Country: None (occurrence: None)
  Receive Date: 20100329
  Receipt Date: 20100318
  Transmission Date: 20100710
  Serious: Yes (Other)
  Sender: FDA-Public Use
  Company Number: PHHY2010DE17789

PATIENT
  Age: 87 Year
  Sex: Female

DRUGS (3)
  1. DIOVAN [Suspect]
     Dosage: HALF DOSAGE FORM ONCE DAILY
     Route: 048
     Dates: start: 20070101
  2. MOGADAN [Concomitant]
     Indication: SLEEP DISORDER
  3. CONCOR [Concomitant]
     Dosage: 2.5 MG, UNK

REACTIONS (2)
  - CYSTITIS [None]
  - URINARY RETENTION [None]
